FAERS Safety Report 18125480 (Version 3)
Quarter: 2020Q3

REPORT INFORMATION
  Report Type: Report from Study
  Country: None (occurrence: JP)
  Receive Date: 20200807
  Receipt Date: 20200903
  Transmission Date: 20201103
  Serious: Yes (Hospitalization)
  Sender: FDA-Public Use
  Company Number: JP-ABBVIE-20P-087-3509239-00

PATIENT
  Age: 80 Year
  Sex: Male
  Weight: 48.5 kg

DRUGS (13)
  1. AZACITIDINE. [Suspect]
     Active Substance: AZACITIDINE
     Indication: ACUTE MYELOID LEUKAEMIA
     Dosage: DAYS 1?5 OF EACH 28 DAY CYCLE UP TO 6 CYCLES
     Route: 042
     Dates: start: 20200709, end: 20200713
  2. VENETOCLAX. [Suspect]
     Active Substance: VENETOCLAX
     Route: 048
     Dates: start: 20200824
  3. NEXIUM [Concomitant]
     Active Substance: ESOMEPRAZOLE MAGNESIUM
     Indication: GASTRITIS PROPHYLAXIS
     Route: 048
     Dates: start: 20200213
  4. MIYA?BM [Concomitant]
     Active Substance: CLOSTRIDIUM BUTYRICUM SPORES STRAIN M-55
     Indication: PROPHYLAXIS AGAINST DIARRHOEA
     Route: 048
     Dates: start: 20200213
  5. AZACITIDINE. [Suspect]
     Active Substance: AZACITIDINE
     Dosage: DAYS 1?5 OF EACH 28 DAY CYCLE UP TO 6 CYCLES
     Route: 042
     Dates: start: 20200824
  6. LANDSEN [Concomitant]
     Active Substance: CLONAZEPAM
     Indication: BLEPHAROSPASM
     Route: 048
     Dates: start: 20110623
  7. REBAMIPIDE [Concomitant]
     Active Substance: REBAMIPIDE
     Indication: GASTROINTESTINAL DISORDER PROPHYLAXIS
     Route: 048
     Dates: start: 2014
  8. DAIPHEN [Concomitant]
     Active Substance: SULFAMETHOXAZOLE\TRIMETHOPRIM
     Indication: INFECTION PROPHYLAXIS
     Dosage: MONDAY,WEDNESDAY,FRIDAY
     Route: 048
     Dates: start: 20200331
  9. HIRUDOID LOTION [Concomitant]
     Indication: SENILE XEROSIS
     Route: 062
     Dates: start: 20200229
  10. EXCELASE COMBINATION TABLET [Concomitant]
     Indication: DYSPEPSIA
     Route: 048
     Dates: start: 2014
  11. KAYTWO [Concomitant]
     Active Substance: MENATETRENONE
     Indication: HYPOVITAMINOSIS
     Route: 048
     Dates: start: 20200417
  12. VENETOCLAX. [Suspect]
     Active Substance: VENETOCLAX
     Indication: ACUTE MYELOID LEUKAEMIA
     Route: 048
     Dates: start: 20200709, end: 20200801
  13. BROTIZOLAM [Concomitant]
     Active Substance: BROTIZOLAM
     Indication: INSOMNIA
     Route: 048
     Dates: start: 20200212

REACTIONS (1)
  - Leukopenia [Not Recovered/Not Resolved]

NARRATIVE: CASE EVENT DATE: 20200730
